FAERS Safety Report 11239990 (Version 6)
Quarter: 2017Q3

REPORT INFORMATION
  Report Type: Spontaneous
  Country: CA (occurrence: CA)
  Receive Date: 20150706
  Receipt Date: 20170817
  Transmission Date: 20171127
  Serious: Yes (Other)
  Sender: FDA-Public Use
  Company Number: CA-PFIZER INC-2015217691

PATIENT
  Age: 65 Year
  Sex: Male

DRUGS (44)
  1. MELOXICAM. [Concomitant]
     Active Substance: MELOXICAM
     Dosage: 7.5 MG, DAILY (AS NEEDED)
     Route: 048
  2. TIAZAC [Concomitant]
     Active Substance: DILTIAZEM HYDROCHLORIDE
     Dosage: 240 MG, UNK
     Route: 048
  3. RESTASIS [Concomitant]
     Active Substance: CYCLOSPORINE
     Dosage: 2 GTT, 4X/DAY (EVERY 8HOURS)
     Route: 047
  4. METOPROLOL. [Concomitant]
     Active Substance: METOPROLOL
     Dosage: 25 MG, UNK
  5. CARDURA [Concomitant]
     Active Substance: DOXAZOSIN MESYLATE
     Dosage: 2 MG, DAILY
     Route: 048
  6. RESTASIS [Concomitant]
     Active Substance: CYCLOSPORINE
     Dosage: 2 GTT  PER EYE, 2X/DAY
     Route: 047
  7. SWISS ONE MULTI [Concomitant]
     Dosage: HALF TABLET AT BREAKFAST AND HALF TABLET AT SUPPER
  8. WELLBUTRIN [Concomitant]
     Active Substance: BUPROPION HYDROCHLORIDE
     Dosage: 200 MG, DAILY
     Route: 048
  9. LEVITRA [Concomitant]
     Active Substance: VARDENAFIL HYDROCHLORIDE TRIHYDRATE
     Dosage: UNK UNK, AS NEEDED
  10. CEPHALEXIN /00145501/ [Concomitant]
     Active Substance: CEPHALEXIN
     Dosage: 4 TABLETS BEFORE EVERY DENTAL APPOINTMENT
  11. SOMAVERT [Suspect]
     Active Substance: PEGVISOMANT
     Indication: ACROMEGALY
     Dosage: 15 MG, 1X/DAY
     Route: 058
     Dates: start: 20131024
  12. TIAZAC [Concomitant]
     Active Substance: DILTIAZEM HYDROCHLORIDE
     Dosage: 360 MG, UNK
     Route: 048
  13. HYDROCHLOROTHIAZIDE. [Concomitant]
     Active Substance: HYDROCHLOROTHIAZIDE
     Dosage: 25 MG, UNK
  14. WELLBUTRIN [Concomitant]
     Active Substance: BUPROPION HYDROCHLORIDE
     Dosage: 100 MG, UNK
     Route: 048
  15. ESOMEPRAZOLE [Concomitant]
     Active Substance: ESOMEPRAZOLE
     Indication: GASTROOESOPHAGEAL REFLUX DISEASE
     Dosage: 40 MG, DAILY (AS NEEDED)
     Route: 048
  16. INDAPAMIDE. [Concomitant]
     Active Substance: INDAPAMIDE
     Dosage: 2.5 MG, DAILY
     Route: 048
  17. ASPIRIN. [Concomitant]
     Active Substance: ASPIRIN
     Dosage: 81 MG, DAILY
     Route: 048
  18. SOMATULINE AUTOGEL [Concomitant]
     Active Substance: LANREOTIDE ACETATE
     Dosage: 120 MG, CYCLIC (EVERY 28 DAYS)
     Route: 030
  19. TIAZAC [Concomitant]
     Active Substance: DILTIAZEM HYDROCHLORIDE
     Dosage: 120 MG, DAILY
     Route: 048
  20. OMEGA PLUS 3 [Concomitant]
     Dosage: 1000 MG, DAILY
     Route: 048
  21. REACTINE [Concomitant]
     Active Substance: CETIRIZINE HYDROCHLORIDE
     Indication: NASAL DISORDER
     Dosage: 10 MG, DAILY (AS NEEDED)
     Route: 048
  22. AVENTYL [Concomitant]
     Active Substance: NORTRIPTYLINE HYDROCHLORIDE
     Indication: MIGRAINE
     Dosage: 75 MG, DAILY
     Route: 048
  23. NADOLOL. [Concomitant]
     Active Substance: NADOLOL
     Dosage: 10 MG, DAILY
     Route: 048
     Dates: start: 201703
  24. TOBRAMYCIN. [Concomitant]
     Active Substance: TOBRAMYCIN
     Dosage: UNK UNK, AS NEEDED
  25. AVODART [Concomitant]
     Active Substance: DUTASTERIDE
     Dosage: 0.05 MG, DAILY
     Route: 048
  26. VITALUX-S [Concomitant]
     Indication: MACULAR DEGENERATION
     Dosage: 2 DF, DAILY
  27. CLONAZEPAM. [Concomitant]
     Active Substance: CLONAZEPAM
     Dosage: 0.5 MG, UNK
  28. CLONAZEPAM. [Concomitant]
     Active Substance: CLONAZEPAM
     Dosage: 1 MG, EVERY NIGHT (AS NEEDED)
     Route: 048
  29. SOMAVERT [Suspect]
     Active Substance: PEGVISOMANT
     Dosage: 7.5 MG, 1X/DAY
     Route: 058
  30. VALSARTAN. [Concomitant]
     Active Substance: VALSARTAN
     Dosage: 160 MG, DAILY
     Route: 048
  31. REACTINE [Concomitant]
     Active Substance: CETIRIZINE HYDROCHLORIDE
     Indication: HYPERSENSITIVITY
  32. VITAMIN D /00107901/ [Concomitant]
     Active Substance: ERGOCALCIFEROL
     Dosage: 1000 IU, DAILY
  33. DULCOLAX (BISACODYL) [Concomitant]
     Active Substance: BISACODYL
     Dosage: 5 MG, ALTERNATE DAY
     Route: 048
  34. TIZANIDINE HCL [Concomitant]
     Active Substance: TIZANIDINE HYDROCHLORIDE
     Dosage: 4 MG, UNK
  35. VALSARTAN. [Concomitant]
     Active Substance: VALSARTAN
     Dosage: 360 MG, UNK
     Route: 048
  36. CYMBALTA [Concomitant]
     Active Substance: DULOXETINE HYDROCHLORIDE
     Dosage: 90 MG, DAILY
     Route: 048
  37. MAGNESIUM [Concomitant]
     Active Substance: MAGNESIUM
  38. DOMPERIDONE [Concomitant]
     Active Substance: DOMPERIDONE
     Indication: DYSPEPSIA
     Dosage: 10 MG, ALTERNATE DAY
     Route: 048
  39. VESICARE [Concomitant]
     Active Substance: SOLIFENACIN SUCCINATE
     Dosage: 5 MG, DAILY
     Route: 048
  40. CABERGOLINE. [Concomitant]
     Active Substance: CABERGOLINE
     Dosage: 0.5 MG, 2X/WEEK
  41. CYMBALTA [Concomitant]
     Active Substance: DULOXETINE HYDROCHLORIDE
     Dosage: 120 MG, UNK
     Route: 048
  42. ELAVIL [Concomitant]
     Active Substance: AMITRIPTYLINE HYDROCHLORIDE
     Dosage: 25 MG, UNK
  43. PULMICORT TURBUHALER [Concomitant]
     Active Substance: BUDESONIDE
     Dosage: 1 DF, AS NEEDED
  44. CIALIS [Concomitant]
     Active Substance: TADALAFIL
     Dosage: UNK UNK, AS NEEDED

REACTIONS (13)
  - Arthralgia [Not Recovered/Not Resolved]
  - Lethargy [Recovered/Resolved]
  - Pain in extremity [Not Recovered/Not Resolved]
  - Back disorder [Unknown]
  - Headache [Not Recovered/Not Resolved]
  - Neuropathy peripheral [Not Recovered/Not Resolved]
  - Malaise [Not Recovered/Not Resolved]
  - Nausea [Not Recovered/Not Resolved]
  - Back pain [Not Recovered/Not Resolved]
  - Adrenal insufficiency [Recovered/Resolved]
  - Drug intolerance [Not Recovered/Not Resolved]
  - Bleeding time prolonged [Not Recovered/Not Resolved]
  - Dizziness [Not Recovered/Not Resolved]

NARRATIVE: CASE EVENT DATE: 201609
